FAERS Safety Report 6766279-6 (Version None)
Quarter: 2010Q2

REPORT INFORMATION
  Report Type: 
  Country: None (occurrence: None)
  Receive Date: 20100611
  Receipt Date: 20100527
  Transmission Date: 20101027
  Serious: Yes (Other)
  Sender: FDA-Public Use
  Company Number: JP-PFIZER INC-2010052004

PATIENT
  Age: 77 Year
  Sex: Female
  Weight: 50.25 kg

DRUGS (17)
  1. FARMORUBICIN [Suspect]
     Indication: HEPATIC NEOPLASM MALIGNANT
     Dosage: 30 MG, 1X/DAY
     Route: 013
     Dates: start: 20100419, end: 20100419
  2. LIPIODOL [Suspect]
     Indication: HEPATIC NEOPLASM MALIGNANT
     Dosage: 5 ML, 1X/DAY
     Route: 013
     Dates: start: 20100419, end: 20100419
  3. IOMERON ^EISAI^ [Suspect]
     Indication: HEPATIC NEOPLASM MALIGNANT
     Dosage: 3 ML, 1X/DAY
     Dates: start: 20100419, end: 20100419
  4. SOSEGON INJECTION [Concomitant]
     Indication: PREOPERATIVE CARE
     Dosage: 15 MG, 2X/DAY
     Route: 030
     Dates: start: 20100419, end: 20100419
  5. SOSEGON INJECTION [Concomitant]
     Indication: CHEST DISCOMFORT
  6. SOSEGON INJECTION [Concomitant]
     Indication: ABDOMINAL PAIN UPPER
  7. ATARAX [Concomitant]
     Dosage: 25 MG, 2X/DAY
     Route: 030
     Dates: start: 20100419, end: 20100419
  8. METHYLPREDNISOLONE SODIUM SUCCINATE [Concomitant]
     Indication: PREOPERATIVE CARE
     Dosage: 500 MG, 2X/DAY
     Route: 042
     Dates: start: 20100419, end: 20100419
  9. METHYLPREDNISOLONE SODIUM SUCCINATE [Concomitant]
     Indication: CHEST DISCOMFORT
  10. METHYLPREDNISOLONE SODIUM SUCCINATE [Concomitant]
     Indication: ABDOMINAL PAIN UPPER
  11. PIRETAZOL [Concomitant]
     Indication: PREOPERATIVE CARE
     Dosage: 1 G, 2X/DAY
     Dates: start: 20100419, end: 20100422
  12. PIRETAZOL [Concomitant]
     Indication: CHEST DISCOMFORT
  13. PIRETAZOL [Concomitant]
     Indication: ABDOMINAL PAIN UPPER
  14. HYDROCORTISONE [Concomitant]
  15. ATROPINE SULFATE [Concomitant]
  16. TANATRIL ^TANABE^ [Concomitant]
  17. CALBLOCK [Concomitant]

REACTIONS (6)
  - ABDOMINAL PAIN UPPER [None]
  - ANAPHYLACTIC REACTION [None]
  - BLOOD PRESSURE DECREASED [None]
  - BRADYCARDIA [None]
  - CHEST DISCOMFORT [None]
  - FEELING ABNORMAL [None]
